FAERS Safety Report 7322644-X (Version None)
Quarter: 2011Q1

REPORT INFORMATION
  Report Type: 
  Country: None (occurrence: None)
  Receive Date: 20110301
  Receipt Date: 20100322
  Transmission Date: 20110831
  Serious: No
  Sender: FDA-Public Use
  Company Number: US-PFIZER INC-2010036945

PATIENT
  Sex: Female
  Weight: 125 kg

DRUGS (6)
  1. HUMIRA [Suspect]
     Indication: PSORIATIC ARTHROPATHY
     Dosage: 40 MG, 1 IN 2 WK
     Route: 065
     Dates: start: 20090801
  2. FLUVOXAMINE MALEATE [Concomitant]
     Indication: ANXIETY
     Dosage: 100 MG, 3X/DAY
  3. LISINOPRIL [Concomitant]
     Indication: HYPERTENSION
     Dosage: 5 MG, 1X/DAY
  4. METFORMIN HYDROCHLORIDE [Concomitant]
     Indication: DIABETES MELLITUS
     Dosage: 2000 MG, 1 IN 2 WEEKS
  5. LEVOTHYROXINE SODIUM [Concomitant]
     Indication: HYPERTHYROIDISM
     Dosage: 0.25 MCG, 1X/DAY
  6. GLUCOTROL [Suspect]
     Indication: DIABETES MELLITUS
     Dosage: 30 MG, 1X/DAY
     Route: 065

REACTIONS (2)
  - GAIT DISTURBANCE [None]
  - MUSCULOSKELETAL STIFFNESS [None]
